FAERS Safety Report 17023077 (Version 1)
Quarter: 2019Q4

REPORT INFORMATION
  Report Type: Spontaneous
  Country: US (occurrence: US)
  Receive Date: 20191112
  Receipt Date: 20191112
  Transmission Date: 20200122
  Serious: No
  Sender: FDA-Public Use
  Company Number: US-BAUSCH-BL-2019-022048

PATIENT
  Age: 47 Year
  Sex: Female
  Weight: 57.2 kg

DRUGS (1)
  1. APRISO [Suspect]
     Active Substance: MESALAMINE
     Indication: COLITIS ULCERATIVE
     Dosage: APPROXIMATELY 27/JUN/2019 4 PILLS DAILY.
     Route: 048
     Dates: start: 201906, end: 20190706

REACTIONS (1)
  - Hypersensitivity [Recovered/Resolved]

NARRATIVE: CASE EVENT DATE: 20190704
